FAERS Safety Report 6369139-8 (Version None)
Quarter: 2009Q3

REPORT INFORMATION
  Report Type: 
  Country: None (occurrence: None)
  Receive Date: 20090918
  Receipt Date: 20090918
  Transmission Date: 20100115
  Serious: No
  Sender: FDA-Public Use
  Company Number: None

PATIENT
  Age: 22 Year
  Sex: Female
  Weight: 53.2 kg

DRUGS (3)
  1. ESCITALOPRAM [Suspect]
     Indication: INITIAL INSOMNIA
     Dosage: ESCITALOPRAM 5MG 1 TAB DAILY PO
     Route: 048
     Dates: start: 20090826, end: 20090827
  2. ESCITALOPRAM [Suspect]
     Indication: PANIC DISORDER
     Dosage: ESCITALOPRAM 5MG 1 TAB DAILY PO
     Route: 048
     Dates: start: 20090826, end: 20090827
  3. RAMELTEON [Concomitant]

REACTIONS (4)
  - DISTURBANCE IN ATTENTION [None]
  - FEELING ABNORMAL [None]
  - MYDRIASIS [None]
  - SOMNOLENCE [None]
